FAERS Safety Report 9026555 (Version 1)
Quarter: 2012Q4

REPORT INFORMATION
  Report Type: Spontaneous
  Country: US (occurrence: None)
  Receive Date: 20121214
  Receipt Date: 20121214
  Transmission Date: 20130627
  Serious: Yes (Death)
  Sender: FDA-Public Use
  Company Number: None

PATIENT
  Age: 65 Year
  Sex: Female

DRUGS (2)
  1. SPRYCEL (CML) TABS 100 MG [Suspect]
     Indication: MALIGNANT NEOPLASM NOS
     Dosage: 100mg QD PO
     Route: 048
     Dates: start: 20121123, end: 20121212
  2. SPRYCEL (CML) TABS 100 MG [Suspect]
     Indication: MALIGNANT NEOPLASM NOS
     Dates: start: 20121212

REACTIONS (1)
  - Death [None]
